FAERS Safety Report 21805715 (Version 1)
Quarter: 2023Q1

REPORT INFORMATION
  Report Type: Spontaneous
  Country: DE (occurrence: DE)
  Receive Date: 20230102
  Receipt Date: 20230102
  Transmission Date: 20230418
  Serious: Yes (Other)
  Sender: FDA-Public Use
  Company Number: DE-BoehringerIngelheim-2022-BI-209838

PATIENT
  Age: 48 Year
  Sex: Male

DRUGS (1)
  1. AFATINIB [Suspect]
     Active Substance: AFATINIB
     Indication: Adenocarcinoma
     Dates: start: 201412

REACTIONS (8)
  - Neoplasm progression [Unknown]
  - Lung neoplasm [Unknown]
  - Metastases to bone [Recovering/Resolving]
  - Diarrhoea [Unknown]
  - Rash [Unknown]
  - Lymphadenopathy [Unknown]
  - Drug ineffective [Unknown]
  - Gene mutation [Unknown]
